FAERS Safety Report 18333392 (Version 1)
Quarter: 2020Q4

REPORT INFORMATION
  Report Type: Spontaneous
  Country: JP (occurrence: JP)
  Receive Date: 20201001
  Receipt Date: 20201001
  Transmission Date: 20210113
  Serious: Yes (Hospitalization, Other)
  Sender: FDA-Public Use
  Company Number: NVSJ2020JP009278

PATIENT
  Age: 41 Year

DRUGS (2)
  1. FINGOLIMOD. [Suspect]
     Active Substance: FINGOLIMOD
     Indication: MULTIPLE SCLEROSIS
     Dosage: UNK
     Route: 048
     Dates: start: 201210, end: 201407
  2. FINGOLIMOD. [Suspect]
     Active Substance: FINGOLIMOD
     Indication: SECONDARY PROGRESSIVE MULTIPLE SCLEROSIS
     Dosage: UNK
     Route: 048
     Dates: start: 201703

REACTIONS (12)
  - Secondary progressive multiple sclerosis [Unknown]
  - Product use in unapproved indication [Unknown]
  - Dizziness [Unknown]
  - Cerebral atrophy [Unknown]
  - Ataxia [Unknown]
  - Hypoaesthesia [Unknown]
  - Dysuria [Unknown]
  - Disease progression [Unknown]
  - Diplopia [Unknown]
  - Gait disturbance [Unknown]
  - Ophthalmoplegia [Unknown]
  - Fall [Unknown]

NARRATIVE: CASE EVENT DATE: 201304
